FAERS Safety Report 23293872 (Version 1)
Quarter: 2023Q4

REPORT INFORMATION
  Report Type: Spontaneous
  Country: US (occurrence: None)
  Receive Date: 20231213
  Receipt Date: 20231213
  Transmission Date: 20240109
  Serious: Yes (Death, Hospitalization)
  Sender: FDA-Public Use
  Company Number: None

PATIENT
  Age: 14 Month
  Sex: Male
  Weight: 9.56 kg

DRUGS (5)
  1. CALASPARGASE PEGOL-MKNL [Suspect]
     Active Substance: CALASPARGASE PEGOL-MKNL
     Dates: end: 20231123
  2. CYTARABINE [Suspect]
     Active Substance: CYTARABINE
     Dates: end: 20231130
  3. DEXAMETHASONE [Suspect]
     Active Substance: DEXAMETHASONE
     Dates: end: 20231206
  4. METHOTREXATE [Suspect]
     Active Substance: METHOTREXATE
     Dates: end: 20231127
  5. VINCRISTINE SULFATE [Suspect]
     Active Substance: VINCRISTINE SULFATE
     Dates: end: 20231204

REACTIONS (24)
  - Febrile neutropenia [None]
  - Cellulitis [None]
  - Tachycardia [None]
  - Septic shock [None]
  - Hypotension [None]
  - Altered state of consciousness [None]
  - Respiratory distress [None]
  - Metabolic acidosis [None]
  - Gaze palsy [None]
  - Seizure like phenomena [None]
  - Fatigue [None]
  - Irritability [None]
  - Tachypnoea [None]
  - Abdominal distension [None]
  - Vomiting [None]
  - Back pain [None]
  - Rash [None]
  - Wound [None]
  - Bradycardia [None]
  - Pancytopenia [None]
  - Cardiac arrest [None]
  - Serratia test positive [None]
  - Pulmonary haemorrhage [None]
  - Gastrointestinal haemorrhage [None]

NARRATIVE: CASE EVENT DATE: 20231207
